FAERS Safety Report 6030277-0 (Version None)
Quarter: 2009Q1

REPORT INFORMATION
  Report Type: 
  Country: None (occurrence: None)
  Receive Date: 20090107
  Receipt Date: 20081229
  Transmission Date: 20090719
  Serious: Yes (Hospitalization)
  Sender: FDA-Public Use
  Company Number: US-SANOFI-SYNTHELABO-F01200801981

PATIENT
  Sex: Male

DRUGS (8)
  1. PROTONIX [Concomitant]
  2. LOMOTIL [Concomitant]
  3. MEGACE [Concomitant]
  4. LIDOCAINE [Concomitant]
  5. SYNTHROID [Concomitant]
  6. FLUOROURACIL [Suspect]
     Dosage: 320 MG/M2 BOLUS FOLLOWED BY 960 MG/M2 INFUSION
     Route: 041
     Dates: start: 20081120, end: 20081122
  7. ERLOTINIB [Suspect]
     Route: 048
     Dates: start: 20080724
  8. OXALIPLATIN [Suspect]
     Indication: OESOPHAGEAL CARCINOMA
     Route: 041
     Dates: start: 20081120, end: 20081120

REACTIONS (5)
  - ANAEMIA [None]
  - FATIGUE [None]
  - HAEMATURIA [None]
  - HYDRONEPHROSIS [None]
  - PNEUMONIA [None]
